FAERS Safety Report 9250971 (Version 2)
Quarter: 2013Q4

REPORT INFORMATION
  Report Type: Report from Study
  Country: NL (occurrence: NL)
  Receive Date: 20130424
  Receipt Date: 20131105
  Transmission Date: 20140711
  Serious: Yes (Death)
  Sender: FDA-Public Use
  Company Number: PHHY2013NL039300

PATIENT
  Age: 85 Year
  Sex: Female

DRUGS (11)
  1. ACLASTA [Suspect]
     Indication: OSTEOPOROSIS
     Dosage: 5 MG, ONCE PER 364 DAYS
     Route: 042
     Dates: start: 20120419
  2. ACLASTA [Suspect]
     Dosage: 5 MG, ONCE PER 364 DAYS
     Route: 042
     Dates: start: 20130411
  3. BISPHOSPHONATES [Suspect]
     Dosage: UNK
  4. ASA [Concomitant]
     Dosage: 80 MG, 1DD1
  5. CALCIUM + VITAMIN D3 [Concomitant]
     Dosage: 500 MG/1000 MG, 1DD1
  6. LERCANIDIPINE [Concomitant]
     Dosage: 10 MG, 1DD1
  7. OMEPRAZOLE [Concomitant]
     Dosage: 20 MG, 1DD1
  8. RIVOTRIL [Concomitant]
     Dosage: 0.5 MG, 1DD1 WHEN NEEDED
  9. TOLTERODINE [Concomitant]
     Dosage: 1 MG, 1DD1
  10. FEXOFENADINE [Concomitant]
     Dosage: 180 MG, 1DD1 BEFORE NIGHT
  11. LOSARTAN [Concomitant]
     Dosage: 50 MG, 1DD1

REACTIONS (1)
  - Atrial fibrillation [Fatal]
